FAERS Safety Report 7809038-5 (Version None)
Quarter: 2011Q4

REPORT INFORMATION
  Report Type: 
  Country: None (occurrence: None)
  Receive Date: 20111012
  Receipt Date: 20111012
  Transmission Date: 20120403
  Serious: Yes (Other)
  Sender: FDA-Public Use
  Company Number: None

PATIENT
  Age: 55 Year
  Sex: Female
  Weight: 52.163 kg

DRUGS (1)
  1. CRESTOR [Suspect]
     Indication: BLOOD CHOLESTEROL INCREASED
     Dosage: 5MG
     Route: 048
     Dates: start: 20110507, end: 20111007

REACTIONS (15)
  - MALAISE [None]
  - ASTHENIA [None]
  - PAIN [None]
  - BACK PAIN [None]
  - DISTURBANCE IN ATTENTION [None]
  - PYREXIA [None]
  - DISCOMFORT [None]
  - ARTHRALGIA [None]
  - INSOMNIA [None]
  - DIZZINESS [None]
  - FATIGUE [None]
  - OCULAR HYPERAEMIA [None]
  - NAUSEA [None]
  - BLOOD GLUCOSE INCREASED [None]
  - MUSCULOSKELETAL PAIN [None]
